FAERS Safety Report 5205463-X (Version None)
Quarter: 2007Q1

REPORT INFORMATION
  Report Type: 
  Country: None (occurrence: None)
  Receive Date: 20070109
  Receipt Date: 20070103
  Transmission Date: 20070707
  Serious: Yes (Death, Hospitalization, Other)
  Sender: FDA-Public Use
  Company Number: 163-21880-06110103

PATIENT
  Age: 74 Year
  Sex: Male

DRUGS (8)
  1. REVLIMID [Suspect]
     Indication: CYTOGENETIC ANALYSIS ABNORMAL
     Dosage: 25 MG, 1 IN 1 D, ORAL
     Route: 048
     Dates: start: 20060908, end: 20060918
  2. REVLIMID [Suspect]
     Indication: MYELODYSPLASTIC SYNDROME
     Dosage: 25 MG, 1 IN 1 D, ORAL
     Route: 048
     Dates: start: 20060908, end: 20060918
  3. NEXIUM [Concomitant]
  4. HYDROCHLOROTHIAZIDE [Concomitant]
  5. LEVOXYL [Concomitant]
  6. ASPIRIN [Concomitant]
  7. LISINOPRIL [Concomitant]
  8. METOPROLOL TARTRATE [Concomitant]

REACTIONS (5)
  - FATIGUE [None]
  - INFECTION [None]
  - PNEUMONIA [None]
  - SEPSIS [None]
  - VIRAL INFECTION [None]
